FAERS Safety Report 13292855 (Version 3)
Quarter: 2017Q3

REPORT INFORMATION
  Report Type: Spontaneous
  Country: FR (occurrence: FR)
  Receive Date: 20170303
  Receipt Date: 20170704
  Transmission Date: 20171127
  Serious: Yes (Hospitalization)
  Sender: FDA-Public Use
  Company Number: FR-RECORDATI RARE DISEASES-FR-R13005-17-00065

PATIENT
  Age: 2 Year
  Sex: Female
  Weight: 13.8 kg

DRUGS (5)
  1. VINCRISTINE HOSPIRA [Suspect]
     Active Substance: VINCRISTINE
     Indication: RENAL NEOPLASM
     Route: 042
     Dates: start: 20170130, end: 20170130
  2. GLYCERIN. [Concomitant]
     Active Substance: GLYCERIN
     Indication: CONSTIPATION
     Route: 065
  3. COSMEGEN [Suspect]
     Active Substance: DACTINOMYCIN
     Indication: RENAL NEOPLASM
     Route: 042
     Dates: start: 20170130
  4. IMPORTAL [Concomitant]
     Active Substance: LACTITOL
     Indication: PRODUCT USED FOR UNKNOWN INDICATION
     Route: 048
     Dates: start: 20170130, end: 20170206
  5. ZOPHREN [Concomitant]
     Active Substance: ONDANSETRON
     Indication: PROPHYLAXIS OF NAUSEA AND VOMITING
     Route: 048
     Dates: start: 20170130, end: 20170211

REACTIONS (6)
  - Pain in jaw [Recovered/Resolved]
  - Neurotoxicity [Recovered/Resolved]
  - Pain in extremity [Recovered/Resolved]
  - Ileus paralytic [Recovered/Resolved]
  - Anuria [Recovered/Resolved]
  - Rash maculo-papular [Recovered/Resolved]

NARRATIVE: CASE EVENT DATE: 20170206
